FAERS Safety Report 25620200 (Version 1)
Quarter: 2025Q3

REPORT INFORMATION
  Report Type: Spontaneous
  Country: US (occurrence: US)
  Receive Date: 20250730
  Receipt Date: 20250730
  Transmission Date: 20251020
  Serious: No
  Sender: AZURITY PHARMACEUTICALS
  Company Number: US-AZURITY PHARMACEUTICALS, INC.-AZR202408-000427

PATIENT
  Sex: Female

DRUGS (3)
  1. TRIPTODUR [Suspect]
     Active Substance: TRIPTORELIN
     Indication: Product used for unknown indication
     Route: 065
  2. TRIPTODUR [Suspect]
     Active Substance: TRIPTORELIN
     Route: 030
     Dates: start: 20240212
  3. TRIPTODUR [Suspect]
     Active Substance: TRIPTORELIN
     Route: 030
     Dates: start: 20250219

REACTIONS (7)
  - Product dose omission issue [Unknown]
  - Wrong technique in product usage process [Unknown]
  - Product use complaint [Unknown]
  - Product physical issue [Unknown]
  - Needle issue [Unknown]
  - Syringe issue [Unknown]
  - Liquid product physical issue [Unknown]
